FAERS Safety Report 8979363 (Version 4)
Quarter: 2013Q2

REPORT INFORMATION
  Report Type: Spontaneous
  Country: US (occurrence: US)
  Receive Date: 20121221
  Receipt Date: 20130513
  Transmission Date: 20140414
  Serious: Yes (Other)
  Sender: FDA-Public Use
  Company Number: US-009507513-1212USA007604

PATIENT
  Sex: Female
  Weight: 88.44 kg

DRUGS (4)
  1. FOSAMAX [Suspect]
     Indication: OSTEOPENIA
     Dosage: 5 MG, QD
     Route: 048
     Dates: start: 19980424, end: 19981001
  2. FOSAMAX [Suspect]
     Dosage: 10 MG, QD
     Route: 048
     Dates: start: 19981002, end: 20010706
  3. FOSAMAX [Suspect]
     Dosage: 70 MG, QW
     Route: 048
     Dates: start: 20010707, end: 20060125
  4. FOSAMAX PLUS D [Suspect]
     Indication: OSTEOPENIA
     Dosage: 70 MG, QW
     Route: 048
     Dates: start: 20060126, end: 20070404

REACTIONS (20)
  - Osteonecrosis of jaw [Unknown]
  - Dental fistula [Unknown]
  - Temporomandibular joint syndrome [Unknown]
  - Edentulous [Unknown]
  - Tooth abscess [Unknown]
  - Hormone replacement therapy [Recovered/Resolved]
  - Asthma [Unknown]
  - Tooth abscess [Unknown]
  - Tinnitus [Recovering/Resolving]
  - Fistula [Unknown]
  - Dental caries [Unknown]
  - Tooth fracture [Unknown]
  - Tooth abscess [Unknown]
  - Tooth fracture [Unknown]
  - Tooth fracture [Unknown]
  - Tooth loss [Unknown]
  - Urine calcium decreased [Unknown]
  - Low turnover osteopathy [Unknown]
  - Tooth fracture [Unknown]
  - Lymphadenopathy [Unknown]
